FAERS Safety Report 7985624-7 (Version None)
Quarter: 2011Q4

REPORT INFORMATION
  Report Type: 
  Country: None (occurrence: None)
  Receive Date: 20111216
  Receipt Date: 20111209
  Transmission Date: 20120403
  Serious: Yes (Hospitalization, Other)
  Sender: FDA-Public Use
  Company Number: NL-BRISTOL-MYERS SQUIBB COMPANY-16284770

PATIENT
  Age: 59 Year
  Sex: Male
  Weight: 76 kg

DRUGS (7)
  1. CISPLATIN [Suspect]
     Indication: NON-SMALL CELL LUNG CANCER
     Dosage: RESTARTED:10OCT2011.LAST DOSE:29AUG2011.
     Route: 042
     Dates: start: 20110725, end: 20110829
  2. ETOPOSIDE [Suspect]
     Indication: NON-SMALL CELL LUNG CANCER
     Dosage: RESTARTED:10OCT2011.LAST DOSE:26AUG2011.
     Route: 042
     Dates: start: 20110725, end: 20110826
  3. NEXIUM [Concomitant]
     Indication: ABDOMINAL PAIN UPPER
     Dates: start: 20110915
  4. EMEND [Concomitant]
     Dates: start: 20111121, end: 20111124
  5. DEXAMETHASONE [Concomitant]
     Dates: start: 20111121, end: 20111124
  6. ZOFRAN [Concomitant]
     Dates: start: 20111121, end: 20111122
  7. DURAGESIC-100 [Concomitant]
     Indication: OESOPHAGITIS
     Dates: start: 20110919, end: 20111125

REACTIONS (2)
  - MALAISE [None]
  - DEHYDRATION [None]
